FAERS Safety Report 15440388 (Version 1)
Quarter: 2018Q3

REPORT INFORMATION
  Report Type: Report from Study
  Country: DE (occurrence: DE)
  Receive Date: 20180928
  Receipt Date: 20180928
  Transmission Date: 20181010
  Serious: Yes (Other)
  Sender: FDA-Public Use
  Company Number: PHHY2018DE033287

PATIENT
  Sex: Female
  Weight: 57 kg

DRUGS (7)
  1. KISQALI [Suspect]
     Active Substance: RIBOCICLIB
     Dosage: 400 MG, (3/1 [WEEKS])
     Route: 048
     Dates: start: 20180511
  2. KISQALI [Suspect]
     Active Substance: RIBOCICLIB
     Dosage: 400 MG, (3/1 [WEEKS])
     Route: 048
     Dates: start: 20180222, end: 20180322
  3. KISQALI [Suspect]
     Active Substance: RIBOCICLIB
     Dosage: 400 MG, (3/1 [WEEKS])
     Route: 048
     Dates: start: 20180325, end: 20180412
  4. KISQALI [Suspect]
     Active Substance: RIBOCICLIB
     Indication: BREAST CANCER METASTATIC
     Dosage: 200 MG, (3/1 [WEEKS])
     Route: 048
     Dates: start: 20180113, end: 20180221
  5. KISQALI [Suspect]
     Active Substance: RIBOCICLIB
     Dosage: 600 MG, (3/1 [WEEKS])
     Route: 048
     Dates: start: 20180413, end: 20180501
  6. LETROHEXAL [Suspect]
     Active Substance: LETROZOLE
     Indication: BREAST CANCER METASTATIC
     Dosage: 2.5 MG, QD
     Route: 048
     Dates: start: 20180113
  7. KISQALI [Suspect]
     Active Substance: RIBOCICLIB
     Dosage: 600 MG, (3/1 [WEEKS])
     Route: 048
     Dates: start: 20180323, end: 20180324

REACTIONS (4)
  - Leukopenia [Recovered/Resolved]
  - Thrombocytopenia [Recovered/Resolved]
  - Thrombocytopenia [Recovered/Resolved]
  - Alopecia [Unknown]

NARRATIVE: CASE EVENT DATE: 20180126
